FAERS Safety Report 16804829 (Version 1)
Quarter: 2019Q3

REPORT INFORMATION
  Report Type: Spontaneous
  Country: US (occurrence: US)
  Receive Date: 20190913
  Receipt Date: 20190913
  Transmission Date: 20191005
  Serious: No
  Sender: FDA-Public Use
  Company Number: US-DRREDDYS-USA/USA/19/0114026

PATIENT
  Age: 52 Year
  Sex: Male
  Weight: 81 kg

DRUGS (3)
  1. TYLENOL [Concomitant]
     Active Substance: ACETAMINOPHEN
     Indication: PRODUCT USED FOR UNKNOWN INDICATION
     Route: 048
  2. HABITROL [Suspect]
     Active Substance: NICOTINE
     Indication: TOBACCO USER
     Dosage: PLACE IT ON UPPER BODY
     Route: 062
     Dates: start: 20190903
  3. METOPROLOL TARTRATE. [Concomitant]
     Active Substance: METOPROLOL TARTRATE
     Indication: PRODUCT USED FOR UNKNOWN INDICATION
     Dosage: 1/2 TABLET TWICE A DAY
     Route: 048

REACTIONS (3)
  - Product use issue [Recovering/Resolving]
  - Product adhesion issue [Recovered/Resolved]
  - Treatment noncompliance [Recovered/Resolved]

NARRATIVE: CASE EVENT DATE: 20190903
